FAERS Safety Report 10671452 (Version 1)
Quarter: 2014Q4

REPORT INFORMATION
  Report Type: Spontaneous
  Country: US (occurrence: None)
  Receive Date: 20141222
  Receipt Date: 20141222
  Transmission Date: 20150529
  Serious: Yes (Other)
  Sender: FDA-Public Use
  Company Number: None

PATIENT
  Age: 44 Year
  Sex: Male
  Weight: 131.09 kg

DRUGS (1)
  1. TAMSULOSIN [Suspect]
     Active Substance: TAMSULOSIN
     Indication: URINARY TRACT DISORDER
     Dosage: 1, ONCE DAILY
     Route: 048
     Dates: start: 20141203, end: 20141211

REACTIONS (2)
  - Diplopia [None]
  - Vision blurred [None]

NARRATIVE: CASE EVENT DATE: 20141204
